FAERS Safety Report 8221449-5 (Version None)
Quarter: 2012Q1

REPORT INFORMATION
  Report Type: 
  Country: None (occurrence: None)
  Receive Date: 20120320
  Receipt Date: 20120317
  Transmission Date: 20120608
  Serious: Yes (Hospitalization)
  Sender: FDA-Public Use
  Company Number: US-PFIZER INC-2012040975

PATIENT
  Sex: Female
  Weight: 77.098 kg

DRUGS (3)
  1. CELEBREX [Suspect]
     Indication: ARTHRITIS
     Dosage: 400 MG, 1X/DAY
     Route: 048
     Dates: start: 20120204, end: 20120206
  2. CELEBREX [Suspect]
     Indication: BACK PAIN
  3. CELEBREX [Suspect]
     Indication: ARTHRALGIA

REACTIONS (9)
  - HYPOTENSION [None]
  - DEHYDRATION [None]
  - DYSSTASIA [None]
  - DIARRHOEA [None]
  - BLOOD CHOLESTEROL INCREASED [None]
  - FALL [None]
  - DRUG INEFFECTIVE [None]
  - MALAISE [None]
  - DRUG INTOLERANCE [None]
